FAERS Safety Report 6092498-0 (Version None)
Quarter: 2009Q1

REPORT INFORMATION
  Report Type: 
  Country: None (occurrence: None)
  Receive Date: 20090219
  Receipt Date: 20081208
  Transmission Date: 20090719
  Serious: No
  Sender: FDA-Public Use
  Company Number: WAES 0810USA00856

PATIENT
  Age: 69 Year
  Sex: Male

DRUGS (5)
  1. JANUVIA [Suspect]
     Indication: TYPE 2 DIABETES MELLITUS
     Dosage: 100 MG/DAILY/PO
     Route: 048
     Dates: start: 20080508
  2. BYETTA [Concomitant]
  3. NEXIUM [Concomitant]
  4. PENTASA [Concomitant]
  5. GLIPIZIDE [Concomitant]

REACTIONS (5)
  - BLOOD GLUCOSE INCREASED [None]
  - DIARRHOEA [None]
  - DRUG INEFFECTIVE [None]
  - HAEMATOCHEZIA [None]
  - MEDICATION RESIDUE [None]
